FAERS Safety Report 14317037 (Version 4)
Quarter: 2019Q3

REPORT INFORMATION
  Report Type: Spontaneous
  Country: US (occurrence: US)
  Receive Date: 20171222
  Receipt Date: 20190930
  Transmission Date: 20191004
  Serious: No
  Sender: FDA-Public Use
  Company Number: US-PFIZER INC-2017542764

PATIENT
  Age: 61 Year
  Sex: Female

DRUGS (1)
  1. XELJANZ XR [Suspect]
     Active Substance: TOFACITINIB CITRATE
     Indication: RHEUMATOID ARTHRITIS
     Dosage: 11 MG, DAILY
     Route: 048
     Dates: start: 20171114

REACTIONS (11)
  - Dysuria [Unknown]
  - Stomatitis [Unknown]
  - Pain in extremity [Unknown]
  - Insomnia [Unknown]
  - Headache [Unknown]
  - Chromaturia [Unknown]
  - Drug ineffective [Unknown]
  - Oral herpes [Unknown]
  - Myalgia [Unknown]
  - Exostosis [Unknown]
  - Hypertrichosis [Unknown]
